FAERS Safety Report 16116020 (Version 1)
Quarter: 2019Q2

REPORT INFORMATION
  Report Type: Spontaneous
  Country: US (occurrence: US)
  Receive Date: 20190325
  Receipt Date: 20190325
  Transmission Date: 20190711
  Serious: Yes (Other)
  Sender: FDA-Public Use
  Company Number: None

PATIENT
  Age: 26 Year
  Sex: Female
  Weight: 65.25 kg

DRUGS (15)
  1. ZOLOFT [Concomitant]
     Active Substance: SERTRALINE HYDROCHLORIDE
  2. GRAPEFRUIT. [Concomitant]
     Active Substance: GRAPEFRUIT
  3. LEMON. [Concomitant]
     Active Substance: LEMON
  4. D?TERRA ESSENTIAL OILS [Concomitant]
  5. SLIM AND SASSY [Concomitant]
  6. ORILISSA [Suspect]
     Active Substance: ELAGOLIX SODIUM
     Indication: ENDOMETRIOSIS
     Dosage: ?          QUANTITY:1 TABLET(S);?
     Route: 048
     Dates: start: 20190301, end: 20190307
  7. D?TERRA LIFE LONG VITALITY PACK MUTIVITMAIN [Concomitant]
  8. PEPPERMINT. [Concomitant]
     Active Substance: PEPPERMINT
  9. NEXPLANON [Concomitant]
     Active Substance: ETONOGESTREL
  10. ADDERALLXR 30MG [Concomitant]
  11. JUNIPER BERRY [Concomitant]
  12. DDR PRIME [Concomitant]
  13. FRANKINCENSE [Concomitant]
  14. CASSIA (SENNA ALEXANDRINA) [Concomitant]
     Active Substance: HERBALS\SENNOSIDES
  15. WILD ORANGE [Concomitant]

REACTIONS (2)
  - Urticaria [None]
  - Dermatitis [None]

NARRATIVE: CASE EVENT DATE: 20190307
